FAERS Safety Report 10759088 (Version 1)
Quarter: 2015Q1

REPORT INFORMATION
  Report Type: Report from Study
  Country: US (occurrence: US)
  Receive Date: 20150203
  Receipt Date: 20150203
  Transmission Date: 20150721
  Serious: Yes (Hospitalization)
  Sender: FDA-Public Use
  Company Number: US-ABBVIE-15P-163-1337859-00

PATIENT
  Age: 38 Year
  Sex: Female
  Weight: 74.46 kg

DRUGS (13)
  1. DESONATE [Concomitant]
     Active Substance: DESONIDE
     Indication: PSORIASIS
     Dates: start: 20090729, end: 200908
  2. CLOBEX [Concomitant]
     Active Substance: CLOBETASOL PROPIONATE
     Indication: PRURITUS
     Dates: start: 20090729, end: 201106
  3. TACLONEX [Concomitant]
     Active Substance: BETAMETHASONE DIPROPIONATE\CALCIPOTRIENE\CALCIPOTRIENE HYDRATE
     Indication: PSORIASIS
     Dosage: 0.005%/0.64% PRN
     Dates: start: 20110502, end: 201106
  4. LIDEX [Concomitant]
     Active Substance: FLUOCINONIDE
     Indication: PSORIASIS
     Dates: start: 20130717, end: 201411
  5. HYTONE [Concomitant]
     Active Substance: HYDROCORTISONE
     Indication: PSORIASIS
     Dates: start: 20130717, end: 201411
  6. VECTICAL [Concomitant]
     Active Substance: CALCITRIOL
     Indication: PSORIASIS
     Dosage: 3 MCG/G PRN
     Dates: start: 20090826, end: 201308
  7. ELIDEL [Concomitant]
     Active Substance: PIMECROLIMUS
     Indication: PSORIASIS
     Dates: start: 20120925, end: 201411
  8. CLOBEX [Concomitant]
     Active Substance: CLOBETASOL PROPIONATE
     Indication: PSORIASIS
     Dates: start: 20090729
  9. NIZORAL [Concomitant]
     Active Substance: KETOCONAZOLE
     Indication: PSORIASIS
     Dates: start: 20130529, end: 201307
  10. NIZORAL [Concomitant]
     Active Substance: KETOCONAZOLE
     Dates: start: 20140310, end: 201411
  11. HUMIRA [Suspect]
     Active Substance: ADALIMUMAB
     Indication: PSORIASIS
     Route: 058
     Dates: start: 20100120
  12. ALL OTHER NON-THERAPEUTIC PRODUCTS [Concomitant]
     Active Substance: UNSPECIFIED INGREDIENT
     Indication: PSORIASIS
     Dosage: 570 MJOULES WEEKLY
     Dates: start: 20091027, end: 20140326
  13. CALCITRIOL. [Concomitant]
     Active Substance: CALCITRIOL
     Indication: PSORIASIS
     Dates: start: 20090826

REACTIONS (1)
  - Uterine leiomyoma [Recovered/Resolved]

NARRATIVE: CASE EVENT DATE: 20140509
